FAERS Safety Report 5952620-0 (Version None)
Quarter: 2008Q4

REPORT INFORMATION
  Report Type: 
  Country: None (occurrence: None)
  Receive Date: 20081031
  Receipt Date: 20080910
  Transmission Date: 20090506
  Serious: Yes (Hospitalization, Other)
  Sender: FDA-Public Use
  Company Number: US-WYE-H05929508

PATIENT
  Age: 75 Year
  Sex: Female
  Weight: 71.73 kg

DRUGS (5)
  1. PREMARIN [Suspect]
     Indication: VULVOVAGINAL BURNING SENSATION
     Dosage: 2 G 1X PER 1 DAY, VAGINAL
     Route: 067
     Dates: start: 20070801, end: 20070901
  2. PREMARIN [Suspect]
     Indication: VULVOVAGINAL DRYNESS
     Dosage: 2 G 1X PER 1 DAY, VAGINAL
     Route: 067
     Dates: start: 20070801, end: 20070901
  3. LIPITOR [Concomitant]
  4. TRAZODONE HCL [Concomitant]
  5. ATIVAN [Concomitant]

REACTIONS (1)
  - ENDOMETRIAL CANCER [None]
